FAERS Safety Report 11536406 (Version 1)
Quarter: 2015Q3

REPORT INFORMATION
  Report Type: Spontaneous
  Country: US (occurrence: US)
  Receive Date: 20150903
  Receipt Date: 20150903
  Transmission Date: 20151125
  Serious: No
  Sender: FDA-Public Use
  Company Number: US-ELI_LILLY_AND_COMPANY-US201107002587

PATIENT
  Age: 23 Year
  Sex: Female

DRUGS (3)
  1. ENALAPRIL [Concomitant]
     Active Substance: ENALAPRIL
     Indication: HYPERTENSION
     Dosage: UNK
  2. HUMALOG MIX75/25 [Suspect]
     Active Substance: INSULIN LISPRO
     Indication: TYPE 1 DIABETES MELLITUS
     Dosage: 63 U, EACH MORNING
     Dates: start: 2009
  3. HUMALOG MIX75/25 [Suspect]
     Active Substance: INSULIN LISPRO
     Dosage: 65 U, EACH EVENING
     Dates: start: 2009

REACTIONS (6)
  - Malaise [Unknown]
  - Diabetes mellitus inadequate control [Unknown]
  - Hyperglycaemia [Unknown]
  - Drug dose omission [Unknown]
  - Fatigue [Unknown]
  - Somnolence [Unknown]

NARRATIVE: CASE EVENT DATE: 201107
